FAERS Safety Report 20606258 (Version 5)
Quarter: 2022Q2

REPORT INFORMATION
  Report Type: Report from Study
  Country: US (occurrence: US)
  Receive Date: 20220317
  Receipt Date: 20220507
  Transmission Date: 20220720
  Serious: Yes (Hospitalization)
  Sender: FDA-Public Use
  Company Number: US-NOVARTISTESTPH-NVSC2022US059782

PATIENT
  Age: 53 Year
  Sex: Male

DRUGS (3)
  1. ENTRESTO [Suspect]
     Active Substance: SACUBITRIL\VALSARTAN
     Indication: Product used for unknown indication
     Dosage: UNK UNK, BID
     Route: 048
     Dates: start: 20211015, end: 20220314
  2. ENTRESTO [Suspect]
     Active Substance: SACUBITRIL\VALSARTAN
     Dosage: 2 DOSAGE FORM, BID (2 TABS AT NIGHT AND 1 IN THE MORNING)
     Route: 065
  3. ENTRESTO [Suspect]
     Active Substance: SACUBITRIL\VALSARTAN
     Dosage: 2 DOSAGE FORM, BID (TWO TABS IN AM AND 2 TABS IN THE PM)
     Route: 065

REACTIONS (14)
  - COVID-19 [Unknown]
  - Malaise [Unknown]
  - Sleep disorder [Unknown]
  - Dyskinesia [Unknown]
  - Hepatomegaly [Unknown]
  - Hepatic cyst [Unknown]
  - Abdominal discomfort [Unknown]
  - Dyspnoea [Recovered/Resolved]
  - Somnolence [Unknown]
  - Chest discomfort [Recovered/Resolved]
  - Middle insomnia [Unknown]
  - Cough [Unknown]
  - Fatigue [Recovered/Resolved]
  - Incorrect dose administered [Unknown]

NARRATIVE: CASE EVENT DATE: 20211014
